FAERS Safety Report 4646983-6 (Version None)
Quarter: 2005Q2

REPORT INFORMATION
  Report Type: 
  Country: None (occurrence: None)
  Receive Date: 20050331
  Receipt Date: 20050203
  Transmission Date: 20051028
  Serious: No
  Sender: FDA-Public Use
  Company Number: 05P-163-0290103

PATIENT
  Age: 76 Year
  Sex: Female
  Weight: 72.5755 kg

DRUGS (5)
  1. HUMIRA [Suspect]
     Indication: RHEUMATOID ARTHRITIS
     Dosage: 40 MG, 1 IN 2 WK
     Dates: end: 20050101
  2. METHOTREXATE SODIUM [Concomitant]
  3. PARACETAMOL [Concomitant]
  4. CETIRIZINE HCL [Concomitant]
  5. ERGOCALCIFEROL [Concomitant]

REACTIONS (1)
  - CARDIAC STRESS TEST ABNORMAL [None]
